FAERS Safety Report 8961276 (Version 1)
Quarter: 2012Q4

REPORT INFORMATION
  Report Type: 
  Country: NL (occurrence: NL)
  Receive Date: 20121213
  Receipt Date: 20121213
  Transmission Date: 20130627
  Serious: Yes (Other)
  Sender: FDA-Public Use
  Company Number: NL-AMGEN-NLDSP2012080355

PATIENT
  Age: 52 Year
  Sex: Female

DRUGS (2)
  1. ENBREL [Suspect]
     Indication: RHEUMATOID ARTHRITIS
     Dosage: 50 mg, weekly
     Dates: start: 2006
  2. DICLOFENAC [Concomitant]
     Dosage: UNK

REACTIONS (3)
  - Corneal defect [Recovering/Resolving]
  - Dry eye [Recovering/Resolving]
  - Eye disorder [Unknown]
